FAERS Safety Report 5473330-2 (Version None)
Quarter: 2007Q4

REPORT INFORMATION
  Report Type: 
  Country: None (occurrence: None)
  Receive Date: 20071001
  Receipt Date: 20070919
  Transmission Date: 20080405
  Serious: Yes (Hospitalization, Other)
  Sender: FDA-Public Use
  Company Number: US-AMGEN-US244088

PATIENT
  Sex: Male

DRUGS (3)
  1. EPOGEN [Suspect]
     Indication: DIALYSIS
     Route: 042
  2. LANTUS [Concomitant]
  3. PHENERGAN HCL [Concomitant]

REACTIONS (7)
  - APLASIA PURE RED CELL [None]
  - DECUBITUS ULCER [None]
  - GRAFT COMPLICATION [None]
  - HOSPITALISATION [None]
  - PYREXIA [None]
  - RENAL FAILURE CHRONIC [None]
  - SEPSIS [None]
